FAERS Safety Report 10564735 (Version 1)
Quarter: 2014Q4

REPORT INFORMATION
  Report Type: Spontaneous
  Country: CH (occurrence: CH)
  Receive Date: 20141105
  Receipt Date: 20141105
  Transmission Date: 20150529
  Serious: Yes (Hospitalization)
  Sender: FDA-Public Use
  Company Number: CH-PFIZER INC-2014299409

PATIENT
  Age: 11 Year
  Sex: Female
  Weight: 27 kg

DRUGS (49)
  1. PERFALGAN [Suspect]
     Active Substance: ACETAMINOPHEN
     Indication: PYREXIA
     Route: 042
  2. MIDAZOLAM [Concomitant]
     Active Substance: MIDAZOLAM\MIDAZOLAM HYDROCHLORIDE
     Dosage: 45 MG, 1X/DAY
     Route: 041
     Dates: start: 20140924, end: 20140925
  3. MIDAZOLAM [Concomitant]
     Active Substance: MIDAZOLAM\MIDAZOLAM HYDROCHLORIDE
     Dosage: 20 MG, IN 4 DOSES
     Route: 040
     Dates: start: 20140924, end: 20140924
  4. MORPHINE [Concomitant]
     Active Substance: MORPHINE
     Dosage: 50 MG, 1X/DAY
     Route: 041
     Dates: start: 20140924, end: 20140926
  5. SOLMUCOL [Concomitant]
     Dosage: 600 MG, 1X/DAY
     Route: 040
     Dates: start: 20141008
  6. LIQUEMINE [Concomitant]
     Active Substance: HEPARIN SODIUM
     Dosage: 150 IU, 1X/DAY
     Route: 041
     Dates: start: 20140924, end: 20140929
  7. MOTILIUM [Concomitant]
     Active Substance: DOMPERIDONE
     Dosage: 5 MG, 2X/DAY
     Route: 048
     Dates: start: 20140928, end: 20140928
  8. MULTIBIONTA [Concomitant]
     Active Substance: MINERALS\PROBIOTICS NOS\VITAMINS
     Dosage: 10 GTT, 1X/DAY
     Route: 002
     Dates: start: 20141010, end: 20141010
  9. NERVIFENE [Concomitant]
     Dosage: 1150 MG, DAILY
     Route: 048
     Dates: start: 20140924, end: 20140924
  10. OMEPRAZOLE. [Concomitant]
     Active Substance: OMEPRAZOLE
     Dosage: 20 MG, 1X/DAY
     Route: 048
     Dates: start: 20141007, end: 20141010
  11. TEMESTA [Concomitant]
     Active Substance: LORAZEPAM
     Dosage: 0.5 MG, 1X/DAY
     Route: 048
     Dates: start: 20141004, end: 20141004
  12. MIDAZOLAM [Concomitant]
     Active Substance: MIDAZOLAM\MIDAZOLAM HYDROCHLORIDE
     Dosage: 16 MG, IN 4 DOSES
     Route: 040
     Dates: start: 20140925, end: 20140925
  13. PRIMPERAN [Concomitant]
     Active Substance: METOCLOPRAMIDE HYDROCHLORIDE
     Dosage: 6 MG, 3X/DAY
     Route: 040
     Dates: start: 20140929, end: 20141015
  14. CERNEVIT [Concomitant]
     Active Substance: VITAMINS
     Dosage: 0.5 DF, 1X/DAY
     Route: 041
     Dates: start: 20140929, end: 20141006
  15. TAVEGYL [Concomitant]
     Active Substance: CLEMASTINE FUMARATE
     Dosage: 0.7 MG, 2X/DAY
     Route: 041
     Dates: start: 20141011
  16. ZOFRAN [Concomitant]
     Active Substance: ONDANSETRON HYDROCHLORIDE
     Dosage: 4 MG, 2X/DAY
     Route: 041
     Dates: start: 20141012, end: 20141012
  17. LIQUEMINE [Concomitant]
     Active Substance: HEPARIN SODIUM
     Dosage: 500 IU, 1X/DAY
     Route: 041
     Dates: start: 20140929
  18. OBRACIN [Concomitant]
     Active Substance: TOBRAMYCIN
     Indication: BACTERIAL INFECTION
     Dosage: 70 MG, 3X/DAY
     Route: 041
     Dates: start: 20141010, end: 20141013
  19. PROPOFOL. [Concomitant]
     Active Substance: PROPOFOL
     Dosage: 200 MG, 1X/DAY
     Route: 040
     Dates: start: 20141012, end: 20141012
  20. ZOFRAN [Concomitant]
     Active Substance: ONDANSETRON HYDROCHLORIDE
     Dosage: 4 MG, 4 DOSES GIVEN OVER 2 DAYS
     Route: 041
     Dates: start: 20140926, end: 20140927
  21. ZOFRAN [Concomitant]
     Active Substance: ONDANSETRON HYDROCHLORIDE
     Dosage: 4 MG, 1X/DAY
     Route: 041
     Dates: start: 20141005, end: 20141005
  22. NERVIFENE [Concomitant]
     Dosage: 1200 MG, DAILY
     Route: 048
     Dates: start: 20141008, end: 20141008
  23. MEFENACID [Suspect]
     Active Substance: MEFENAMIC ACID
     Indication: PYREXIA
     Dosage: BETWEEN 250 TO 500 MG ONCE OR TWICE DAILY
     Route: 048
     Dates: start: 20141005, end: 20141013
  24. SOLMUCOL [Concomitant]
     Dosage: 400 MG, 2X/DAY
     Route: 040
     Dates: start: 20140925, end: 20141007
  25. ATARAX [Concomitant]
     Active Substance: HYDROXYZINE\HYDROXYZINE HYDROCHLORIDE
     Dosage: 25 MG, 1X/DAY
     Route: 048
     Dates: start: 20141012, end: 20141012
  26. MULTIBIONTA [Concomitant]
     Active Substance: MINERALS\PROBIOTICS NOS\VITAMINS
     Dosage: 14 GTT, 1X/DAY
     Route: 002
     Dates: start: 20141007, end: 20141009
  27. TEMESTA [Concomitant]
     Active Substance: LORAZEPAM
     Dosage: 1 MG, 1X/DAY
     Route: 048
     Dates: start: 20140926, end: 20140926
  28. TEMESTA [Concomitant]
     Active Substance: LORAZEPAM
     Dosage: 0.5 MG, 1X/DAY
     Route: 048
     Dates: start: 20140926, end: 20140926
  29. VANCOMYCIN HCL [Suspect]
     Active Substance: VANCOMYCIN HYDROCHLORIDE
     Indication: BACTERIAL INFECTION
     Dosage: 400 MG, 1X/DAY
     Route: 041
     Dates: start: 20141010, end: 20141012
  30. KONAKION [Concomitant]
     Active Substance: PHYTONADIONE
     Dosage: 5 MG, SINGLE
     Route: 040
     Dates: start: 20141003, end: 20141003
  31. ZOFRAN [Concomitant]
     Active Substance: ONDANSETRON HYDROCHLORIDE
     Dosage: 4 MG, 1X/DAY
     Route: 041
     Dates: start: 20141004, end: 20141004
  32. MOVICOL [Concomitant]
     Active Substance: POLYETHYLENE GLYCOL 3350\POTASSIUM CHLORIDE\SODIUM BICARBONATE\SODIUM CHLORIDE
     Dosage: 1 DF, 2X/DAY
     Route: 048
     Dates: start: 20140926, end: 20140926
  33. MORPHINE [Concomitant]
     Active Substance: MORPHINE
     Dosage: DECREASING DOSES FROM 15 MG TO 1 MG
     Route: 040
     Dates: start: 20140924, end: 20141014
  34. PROPOFOL. [Concomitant]
     Active Substance: PROPOFOL
     Dosage: 200 MG, 1X/DAY
     Route: 040
     Dates: start: 20141003, end: 20141003
  35. MINALGIN [Concomitant]
     Active Substance: METAMIZOLE
     Dosage: 400 MG, RECEIVED 4 DOSES IN 3 DAYS
     Route: 041
     Dates: start: 20140928, end: 20140930
  36. ZOFRAN [Concomitant]
     Active Substance: ONDANSETRON HYDROCHLORIDE
     Dosage: 4 MG, 1X/DAY
     Route: 041
     Dates: start: 20141001, end: 20141001
  37. MOTILIUM [Concomitant]
     Active Substance: DOMPERIDONE
     Dosage: 5 MG, 3X/DAY
     Route: 048
     Dates: start: 20140925, end: 20140926
  38. NERVIFENE [Concomitant]
     Dosage: 900 MG, DAILY
     Route: 048
     Dates: start: 20140925, end: 20140925
  39. TAZOBAC [Suspect]
     Active Substance: PIPERACILLIN SODIUM\TAZOBACTAM SODIUM
     Indication: PSEUDOMONAS INFECTION
     Dosage: 2 G, 3X/DAY
     Route: 041
     Dates: start: 20140925, end: 20141013
  40. KONAKION [Concomitant]
     Active Substance: PHYTONADIONE
     Dosage: 5 MG, SINGLE
     Route: 040
     Dates: start: 20140930, end: 20140930
  41. DOPAMIN [Concomitant]
     Active Substance: DOPAMINE HYDROCHLORIDE
     Dosage: 410 MG, 1X/DAY
     Route: 040
     Dates: start: 20140924, end: 20140928
  42. LASIX [Concomitant]
     Active Substance: FUROSEMIDE
     Dosage: 2 MG, 1X/DAY
     Route: 041
     Dates: start: 20140925, end: 20140925
  43. NEXIUM [Concomitant]
     Active Substance: ESOMEPRAZOLE MAGNESIUM
     Dosage: 20 MG, 2X/DAY
     Route: 041
     Dates: start: 20140924, end: 20141006
  44. MOTILIUM [Concomitant]
     Active Substance: DOMPERIDONE
     Dosage: 11 MG, DAILY
     Route: 048
     Dates: start: 20140924, end: 20140924
  45. DAFALGAN [Suspect]
     Active Substance: ACETAMINOPHEN
     Indication: PYREXIA
     Dosage: 400 MG AVERAGE DOSE, 4X/DAY
     Route: 048
     Dates: start: 20141007, end: 20141013
  46. RAPIDOCAINE AD US. CARDIOLOGICUM [Concomitant]
     Dosage: 10 MG, 1X/DAY
     Route: 040
     Dates: start: 20141011, end: 20141011
  47. TORA-DOL [Concomitant]
     Active Substance: KETOROLAC TROMETHAMINE
     Dosage: 10 MG, 1X/DAY
     Route: 040
     Dates: start: 20141003, end: 20141003
  48. BULBOID [Concomitant]
     Dosage: 1 DF, 1X/DAY
     Dates: start: 20140928, end: 20140928
  49. OCULOTECT [Concomitant]
     Dosage: 2 DF, 2X/DAY
     Route: 047
     Dates: start: 20140924, end: 20140926

REACTIONS (7)
  - Hepatitis fulminant [Recovering/Resolving]
  - Drug reaction with eosinophilia and systemic symptoms [Recovering/Resolving]
  - Thrombocytopenia [Recovered/Resolved]
  - Red man syndrome [Recovered/Resolved]
  - Renal impairment [Recovered/Resolved]
  - Leukopenia [Recovered/Resolved]
  - Rash maculo-papular [Recovering/Resolving]

NARRATIVE: CASE EVENT DATE: 20141010
